FAERS Safety Report 5239184-4 (Version None)
Quarter: 2007Q1

REPORT INFORMATION
  Report Type: 
  Country: None (occurrence: None)
  Receive Date: 20070212
  Receipt Date: 20070126
  Transmission Date: 20070707
  Serious: Yes (Death, Hospitalization)
  Sender: FDA-Public Use
  Company Number: S07-GER-00221-01

PATIENT
  Age: 75 Year
  Sex: Female

DRUGS (6)
  1. CITALOPRAM HYDROBROMIDE [Suspect]
     Indication: DEPRESSION
     Dosage: 10 MG PO
     Route: 048
     Dates: start: 20060630, end: 20060723
  2. HEPARIN [Suspect]
     Dosage: 24000 IU DAILY IV
     Route: 042
     Dates: start: 20060712, end: 20060724
  3. HEPARIN [Suspect]
     Dates: start: 20060616, end: 20060623
  4. HEPARIN [Suspect]
     Dosage: 5000 IU TID SC
     Route: 058
     Dates: start: 20060623, end: 20060626
  5. HEPARIN [Suspect]
     Dosage: 2500 IU TID SC
     Route: 058
     Dates: start: 20060627, end: 20060703
  6. HEPARIN [Suspect]
     Dosage: 2500 IU DAILY SC
     Route: 058
     Dates: start: 20060706, end: 20060711

REACTIONS (6)
  - HAEMOGLOBIN DECREASED [None]
  - MULTI-ORGAN FAILURE [None]
  - MUSCLE HAEMORRHAGE [None]
  - PLATELET DISORDER [None]
  - SEPSIS [None]
  - THROMBOCYTOPENIA [None]
